FAERS Safety Report 7219812-4 (Version None)
Quarter: 2011Q1

REPORT INFORMATION
  Report Type: 
  Country: None (occurrence: None)
  Receive Date: 20110111
  Receipt Date: 20110104
  Transmission Date: 20110831
  Serious: Yes (Other)
  Sender: FDA-Public Use
  Company Number: US-JNJFOC-20101102757

PATIENT
  Sex: Female
  Weight: 77.11 kg

DRUGS (8)
  1. CALCIUM WITH VITAMIN D [Concomitant]
  2. DIGESTIVE ADVANTAGE [Concomitant]
  3. VITAMIN D [Concomitant]
     Dosage: DOSE 2000 U
  4. MULTI-VITAMINS [Concomitant]
  5. REMICADE [Suspect]
     Indication: CROHN'S DISEASE
     Route: 042
  6. FLONASE [Concomitant]
  7. REMICADE [Suspect]
     Route: 042
  8. FLOVENT [Concomitant]

REACTIONS (2)
  - ILEAL ULCER [None]
  - LARGE INTESTINAL ULCER [None]
